FAERS Safety Report 23574590 (Version 3)
Quarter: 2024Q4

REPORT INFORMATION
  Report Type: Spontaneous
  Country: CA (occurrence: CA)
  Receive Date: 20240228
  Receipt Date: 20241113
  Transmission Date: 20250115
  Serious: Yes (Other)
  Sender: CELLTRION
  Company Number: CA-CELLTRION INC.-2022CA021140

PATIENT

DRUGS (12)
  1. INFLECTRA [Suspect]
     Active Substance: INFLIXIMAB-DYYB
     Indication: Crohn^s disease
     Dosage: 400 MG, EVERY 4 WEEKS, INDUCTION THEN Q 4 WEEKS, INDUCTION AT WEEK 0, 2 AND 6, THEN Q 4 WEEKS
     Route: 042
     Dates: start: 20221221
  2. INFLECTRA [Suspect]
     Active Substance: INFLIXIMAB-DYYB
     Dosage: 400 MG, EVERY 4 WEEKS, INDUCTION THEN Q 4 WEEKS, INDUCTION AT WEEK 0, 2 AND 6, THEN Q 4 WEEKS
     Route: 042
     Dates: start: 20230104
  3. INFLECTRA [Suspect]
     Active Substance: INFLIXIMAB-DYYB
     Dosage: 400 MG, INDUCTION W6
     Route: 042
     Dates: start: 20230203
  4. INFLECTRA [Suspect]
     Active Substance: INFLIXIMAB-DYYB
     Dosage: 400 MG, EVERY 4 WEEKS
     Route: 042
     Dates: start: 20230414
  5. INFLECTRA [Suspect]
     Active Substance: INFLIXIMAB-DYYB
     Dosage: 400 MG, AFTER 6 WEEKS AND 5 DAYS (EVERY 4 WEEKS)
     Route: 042
     Dates: start: 20230531
  6. INFLECTRA [Suspect]
     Active Substance: INFLIXIMAB-DYYB
     Dosage: 400 MG, EVERY 4 WEEKS
     Route: 042
     Dates: start: 20230705
  7. INFLECTRA [Suspect]
     Active Substance: INFLIXIMAB-DYYB
     Dosage: 400 MG, EVERY 4 WEEKS (9 WEEKS AND 1 DAY AFTER)
     Route: 042
     Dates: start: 20230907
  8. INFLECTRA [Suspect]
     Active Substance: INFLIXIMAB-DYYB
     Dosage: 400 MG, EVERY 4 WEEKS, INDUCTION AT WEEK 0, 2 AND 6, THEN Q 4 WEEKS
     Route: 042
     Dates: start: 20231128
  9. INFLECTRA [Suspect]
     Active Substance: INFLIXIMAB-DYYB
     Dosage: 400 MG, EVERY 4 WEEKS, INDUCTION AT WEEK 0, 2 AND 6, THEN Q 4 WEEKS (400 MG, 8 WEEKS)
     Route: 042
     Dates: start: 20240123
  10. INFLECTRA [Suspect]
     Active Substance: INFLIXIMAB-DYYB
     Dosage: 400 MG, EVERY 4 WEEKS, INDUCTION AT WEEK 0, 2 AND 6, THEN Q 4 WEEKS (400 MG, 8 WEEKS)
     Route: 042
     Dates: start: 20240220
  11. INFLECTRA [Suspect]
     Active Substance: INFLIXIMAB-DYYB
     Dosage: 400 MG, EVERY 4 WEEKS, INDUCTION AT WEEK 0, 2 AND 6, THEN Q 4 WEEKS (400 MG, 8 WEEKS)
     Route: 042
     Dates: start: 20240514
  12. PURINETHOL [Concomitant]
     Active Substance: MERCAPTOPURINE
     Dosage: 75 MG, DAILY(DIE)
     Dates: start: 202206

REACTIONS (16)
  - Abdominal hernia [Not Recovered/Not Resolved]
  - Therapeutic response shortened [Unknown]
  - Heart rate decreased [Not Recovered/Not Resolved]
  - Vitamin B12 deficiency [Not Recovered/Not Resolved]
  - Treatment noncompliance [Not Recovered/Not Resolved]
  - Osteopenia [Not Recovered/Not Resolved]
  - Depressed mood [Not Recovered/Not Resolved]
  - Adjustment disorder [Unknown]
  - Intentional product use issue [Unknown]
  - Inappropriate schedule of product administration [Unknown]
  - Fatigue [Recovered/Resolved]
  - Asthenia [Recovered/Resolved]
  - Feeling cold [Recovered/Resolved]
  - Procedural pain [Unknown]
  - Off label use [Unknown]
  - Off label use [Unknown]

NARRATIVE: CASE EVENT DATE: 20221221
